FAERS Safety Report 18551935 (Version 6)
Quarter: 2021Q1

REPORT INFORMATION
  Report Type: Report from Study
  Country: CN (occurrence: CN)
  Receive Date: 20201126
  Receipt Date: 20210122
  Transmission Date: 20210419
  Serious: Yes (Death)
  Sender: FDA-Public Use
  Company Number: CN-ROCHE-2720891

PATIENT
  Age: 63 Year
  Sex: Male
  Weight: 59 kg

DRUGS (7)
  1. MECOBALAMIN [Concomitant]
     Active Substance: METHYLCOBALAMIN
     Indication: NEUROPATHY PERIPHERAL
     Dates: start: 20200929
  2. RITUXIMAB. [Suspect]
     Active Substance: RITUXIMAB
     Indication: DIFFUSE LARGE B-CELL LYMPHOMA
     Dosage: DATE OF MOST RECENT DOSE OF RITUXIMAB (626.25 MG) PRIOR TO EVENT ONSET: 29/SEP/2020?TOTAL OF 6 CYCLE
     Route: 041
     Dates: start: 20200730
  3. BENDAMUSTINE [Suspect]
     Active Substance: BENDAMUSTINE
     Indication: DIFFUSE LARGE B-CELL LYMPHOMA
     Dosage: A TOTAL OF 6 CYCLES ON DAYS 2 AND 3 OF CYCLE 1 AND DAYS 1 AND 2 OF CYCLES 2?6?DATE OF MOST RECENT DO
     Route: 042
     Dates: start: 20200731
  4. CITICOLINE [Concomitant]
     Active Substance: CITICOLINE
     Dates: start: 20200929
  5. PLACEBO [Suspect]
     Active Substance: UNSPECIFIED INGREDIENT
     Indication: DIFFUSE LARGE B-CELL LYMPHOMA
     Dosage: DATE OF MOST RECENT DOSE OF POLATUZUMAB VEDOTIN PRIOR TO EVENT ONSET: 29/SEP/2020?TOTAL OF 6 CYCLES
     Route: 042
     Dates: start: 20200731
  6. BERBERINE HYDROCHLORIDE [Concomitant]
     Active Substance: BERBERINE
     Indication: DIARRHOEA
     Dates: start: 20200923
  7. ENTECAVIR. [Concomitant]
     Active Substance: ENTECAVIR
     Dates: start: 20200731

REACTIONS (1)
  - Septic shock [Fatal]

NARRATIVE: CASE EVENT DATE: 20201108
